FAERS Safety Report 5455592-0 (Version None)
Quarter: 2007Q3

REPORT INFORMATION
  Report Type: 
  Country: None (occurrence: None)
  Receive Date: 20070914
  Receipt Date: 20070829
  Transmission Date: 20080115
  Serious: No
  Sender: FDA-Public Use
  Company Number: 8026447

PATIENT
  Sex: Male

DRUGS (15)
  1. KEPPRA [Suspect]
     Dosage: 500 MG 2/D IV
     Route: 042
  2. TYLENOL (CAPLET) [Concomitant]
  3. NORVASC [Concomitant]
  4. CELEXA [Concomitant]
  5. PROCORT [Concomitant]
  6. NEXIUM [Concomitant]
  7. FOLIC ACID [Concomitant]
  8. HEPARIN [Concomitant]
  9. SYNTHROID [Concomitant]
  10. VIOXX [Concomitant]
  11. IMODIUM [Concomitant]
  12. PANCREASE [Concomitant]
  13. MELROSUM [Concomitant]
  14. PENADUR [Concomitant]
  15. TOBRAMYCIN [Concomitant]

REACTIONS (2)
  - DRUG ADMINISTRATION ERROR [None]
  - WRONG TECHNIQUE IN DRUG USAGE PROCESS [None]
